FAERS Safety Report 5649406-3 (Version None)
Quarter: 2008Q1

REPORT INFORMATION
  Report Type: 
  Country: None (occurrence: None)
  Receive Date: 20080131
  Receipt Date: 20071217
  Transmission Date: 20080703
  Serious: No
  Sender: FDA-Public Use
  Company Number: US200712003927

PATIENT
  Age: 56 Year
  Sex: Female
  Weight: 95.2 kg

DRUGS (10)
  1. BYETTA [Suspect]
     Indication: TYPE 2 DIABETES MELLITUS
     Dosage: 5, 10  UG DAILY (1/D), SUBCUTANEOUS
     Route: 058
     Dates: start: 20061201, end: 20061201
  2. BYETTA [Suspect]
     Indication: TYPE 2 DIABETES MELLITUS
     Dosage: 5, 10  UG DAILY (1/D), SUBCUTANEOUS
     Route: 058
     Dates: start: 20061201, end: 20070301
  3. BYETTA [Suspect]
     Indication: TYPE 2 DIABETES MELLITUS
     Dosage: 5, 10  UG DAILY (1/D), SUBCUTANEOUS
     Route: 058
     Dates: start: 20070301, end: 20071101
  4. BYETTA [Suspect]
     Indication: TYPE 2 DIABETES MELLITUS
     Dosage: 5, 10  UG DAILY (1/D), SUBCUTANEOUS
     Route: 058
     Dates: start: 20071101
  5. VICODIN [Concomitant]
  6. HUMALOG [Concomitant]
  7. METFORMIN HCL [Concomitant]
  8. AVANDIA [Concomitant]
  9. AMARYL [Concomitant]
  10. GLIPIZIDE [Concomitant]

REACTIONS (12)
  - ABDOMINAL PAIN [None]
  - ABDOMINAL PAIN UPPER [None]
  - BLOOD GLUCOSE INCREASED [None]
  - CONSTIPATION [None]
  - DYSPNOEA [None]
  - FLATULENCE [None]
  - HEADACHE [None]
  - MUSCULOSKELETAL STIFFNESS [None]
  - NAUSEA [None]
  - PALPITATIONS [None]
  - RECTAL HAEMORRHAGE [None]
  - WEIGHT DECREASED [None]
